FAERS Safety Report 5724784-5 (Version None)
Quarter: 2008Q2

REPORT INFORMATION
  Report Type: 
  Country: None (occurrence: None)
  Receive Date: 20080501
  Receipt Date: 20080501
  Transmission Date: 20081010
  Serious: Yes (Death, Life-Threatening, Hospitalization, Other)
  Sender: FDA-Public Use
  Company Number: None

PATIENT
  Age: 26 Year
  Sex: Male
  Weight: 54.4316 kg

DRUGS (1)
  1. HEPARIN [Suspect]
     Dosage: PRE-OP INTRA-ARTER
     Route: 013
     Dates: start: 19990804, end: 19990805

REACTIONS (1)
  - INCORRECT DOSE ADMINISTERED [None]
